FAERS Safety Report 25441826 (Version 1)
Quarter: 2025Q2

REPORT INFORMATION
  Report Type: Spontaneous
  Country: IN (occurrence: IN)
  Receive Date: 20250616
  Receipt Date: 20250616
  Transmission Date: 20250716
  Serious: Yes (Other)
  Sender: GLENMARK
  Company Number: IN-GLENMARK PHARMACEUTICALS-2025GMK100997

PATIENT
  Age: 50 Year
  Sex: Male

DRUGS (1)
  1. EZETIMIBE [Suspect]
     Active Substance: EZETIMIBE
     Indication: Lipids abnormal
     Route: 065

REACTIONS (3)
  - Erectile dysfunction [Recovered/Resolved]
  - Testicular pain [Recovered/Resolved]
  - Loss of libido [Recovered/Resolved]
